FAERS Safety Report 6958992-2 (Version None)
Quarter: 2010Q3

REPORT INFORMATION
  Report Type: 
  Country: None (occurrence: None)
  Receive Date: 20100831
  Receipt Date: 20100823
  Transmission Date: 20110219
  Serious: Yes (Other)
  Sender: FDA-Public Use
  Company Number: TW-PFIZER INC-2010095692

PATIENT
  Age: 38 Year
  Sex: Female

DRUGS (1)
  1. NORVASC [Suspect]
     Dosage: 5 MG, 9 TABLET ONCE
     Dates: start: 20100730, end: 20100730

REACTIONS (2)
  - OVERDOSE [None]
  - SUICIDE ATTEMPT [None]
